FAERS Safety Report 8941481 (Version 1)
Quarter: 2012Q4

REPORT INFORMATION
  Report Type: 
  Country: FR (occurrence: FR)
  Receive Date: 20121203
  Receipt Date: 20121203
  Transmission Date: 20130627
  Serious: Yes (Hospitalization)
  Sender: FDA-Public Use
  Company Number: FR-EISAI INC-E7389-03287-SPO-FR

PATIENT
  Age: 49 Year
  Sex: Female

DRUGS (1)
  1. HALAVEN [Suspect]
     Indication: BREAST CANCER
     Dosage: UNKNOWN
     Route: 041
     Dates: start: 20120903

REACTIONS (2)
  - Pleural effusion [Recovered/Resolved]
  - Neutropenia [Recovered/Resolved]
